FAERS Safety Report 15289264 (Version 1)
Quarter: 2018Q3

REPORT INFORMATION
  Report Type: Spontaneous
  Country: US (occurrence: US)
  Receive Date: 20180803
  Receipt Date: 20180803
  Transmission Date: 20181010
  Serious: No
  Sender: FDA-Public Use
  Company Number: None

PATIENT
  Age: 77 Year
  Sex: Female

DRUGS (4)
  1. ATENOLOL 25 MG [Concomitant]
     Active Substance: ATENOLOL
     Dates: start: 20170112, end: 20180708
  2. LISINOPRIL 40 MG [Concomitant]
     Active Substance: LISINOPRIL
     Dates: start: 20170220, end: 20180702
  3. NIFEDIPINE 30 MG ER XL [Concomitant]
     Dates: start: 20170214, end: 20180703
  4. LORAZEPAM. [Suspect]
     Active Substance: LORAZEPAM
     Route: 048

REACTIONS (5)
  - Swollen tongue [None]
  - Hypoaesthesia oral [None]
  - Hypoaesthesia [None]
  - Hypersensitivity [None]
  - Paraesthesia [None]

NARRATIVE: CASE EVENT DATE: 20180511
